FAERS Safety Report 25395208 (Version 1)
Quarter: 2025Q2

REPORT INFORMATION
  Report Type: Other
  Country: US (occurrence: US)
  Receive Date: 20250604
  Receipt Date: 20250604
  Transmission Date: 20250717
  Serious: Yes (Other)
  Sender: APPCO PHARMA LLC
  Company Number: US-Appco Pharma LLC-2178030

PATIENT
  Age: 39 Year
  Sex: Female

DRUGS (6)
  1. TIZANIDINE [Suspect]
     Active Substance: TIZANIDINE
     Indication: Postural orthostatic tachycardia syndrome
  2. MIRTAZAPINE [Suspect]
     Active Substance: MIRTAZAPINE
  3. MIDODRINE HYDROCHLORIDE [Suspect]
     Active Substance: MIDODRINE HYDROCHLORIDE
  4. ONDANSETRON [Suspect]
     Active Substance: ONDANSETRON
  5. TRAZODONE [Suspect]
     Active Substance: TRAZODONE HYDROCHLORIDE
  6. VENLAFAXINE [Suspect]
     Active Substance: VENLAFAXINE HYDROCHLORIDE

REACTIONS (1)
  - Torsade de pointes [Unknown]
